FAERS Safety Report 15974665 (Version 1)
Quarter: 2019Q1

REPORT INFORMATION
  Report Type: Spontaneous
  Country: JP (occurrence: JP)
  Receive Date: 20190218
  Receipt Date: 20190218
  Transmission Date: 20190418
  Serious: Yes (Hospitalization, Other)
  Sender: FDA-Public Use
  Company Number: JP-LUPIN PHARMACEUTICALS INC.-2019-00825

PATIENT
  Age: 75 Year
  Sex: Female
  Weight: 30 kg

DRUGS (9)
  1. PENTAMIDINE [Suspect]
     Active Substance: PENTAMIDINE
     Indication: PNEUMOCYSTIS JIROVECII PNEUMONIA
     Dosage: 04 MILLIGRAM/KILOGRAM, QD (ON THE 34TH DAY, ADMINISTERED 30 MG/H WITH THE CONCENTRATION OF 0.3 MG/ML
     Route: 065
  2. EMTRICITABINE [Concomitant]
     Active Substance: EMTRICITABINE
     Indication: HIV INFECTION
     Dosage: UNK
     Route: 065
  3. ATOVAQUONE. [Suspect]
     Active Substance: ATOVAQUONE
     Dosage: 45 MILLIGRAM/MILLIGRAM, QD
     Route: 065
  4. SULFAMETHOXAZOLE AND TRIMETHOPRIM [Suspect]
     Active Substance: SULFAMETHOXAZOLE\TRIMETHOPRIM
     Indication: PNEUMOCYSTIS JIROVECII PNEUMONIA
     Dosage: 96 MILLIGRAM/KILOGRAM, QD
     Route: 065
  5. ATOVAQUONE. [Suspect]
     Active Substance: ATOVAQUONE
     Indication: PNEUMOCYSTIS JIROVECII PNEUMONIA
     Dosage: 50 MILLIGRAM/MILLIGRAM, QD
     Route: 065
  6. SULFAMETHOXAZOLE AND TRIMETHOPRIM [Suspect]
     Active Substance: SULFAMETHOXAZOLE\TRIMETHOPRIM
     Dosage: 15 MILLIGRAM/KILOGRAM, QD
     Route: 065
  7. DOLUTEGRAVIR [Concomitant]
     Active Substance: DOLUTEGRAVIR
     Indication: HIV INFECTION
     Dosage: UNK
     Route: 065
  8. TENOFOVIR ALAFENAMIDE FUMARATE [Concomitant]
     Active Substance: TENOFOVIR ALAFENAMIDE FUMARATE
     Indication: HIV INFECTION
     Dosage: UNK
     Route: 065
  9. ATOVAQUONE. [Suspect]
     Active Substance: ATOVAQUONE
     Dosage: 25 MILLIGRAM/MILLIGRAM, QD
     Route: 065

REACTIONS (5)
  - Hypoglycaemia [Recovered/Resolved]
  - Pneumocystis jirovecii pneumonia [Recovering/Resolving]
  - Loss of consciousness [Recovered/Resolved]
  - Condition aggravated [Recovering/Resolving]
  - Drug ineffective [Unknown]
